FAERS Safety Report 9459447 (Version 1)
Quarter: 2013Q3

REPORT INFORMATION
  Report Type: Spontaneous
  Country: US (occurrence: US)
  Receive Date: 20130815
  Receipt Date: 20130815
  Transmission Date: 20140515
  Serious: Yes (Other)
  Sender: FDA-Public Use
  Company Number: PHEH2013US017200

PATIENT
  Age: 66 Year
  Sex: Female

DRUGS (2)
  1. DIOVAN [Suspect]
     Dosage: UNK UKN, UNK
  2. DIOVAN [Suspect]
     Dosage: 160 MG, BID

REACTIONS (1)
  - Myocardial infarction [Unknown]
